FAERS Safety Report 22951517 (Version 2)
Quarter: 2024Q1

REPORT INFORMATION
  Report Type: Other
  Country: CA (occurrence: CA)
  Receive Date: 20230918
  Receipt Date: 20240313
  Transmission Date: 20240410
  Serious: Yes (Hospitalization, Other)
  Sender: FDA-Public Use
  Company Number: CA-TOLMAR, INC.-23CA042994

PATIENT
  Sex: Male

DRUGS (4)
  1. ELIGARD [Suspect]
     Active Substance: LEUPROLIDE ACETATE
     Indication: Prostate cancer
     Dosage: 45 MILLIGRAM, Q 6 MONTH
     Route: 058
     Dates: start: 20220413
  2. ELIGARD [Suspect]
     Active Substance: LEUPROLIDE ACETATE
     Dosage: 45 MILLIGRAM, Q 6 MONTH
     Route: 058
     Dates: start: 20230829
  3. ELIGARD [Suspect]
     Active Substance: LEUPROLIDE ACETATE
     Dosage: 45 MILLIGRAM, Q 6 MONTH
     Route: 058
     Dates: start: 20240213
  4. ELIGARD [Suspect]
     Active Substance: LEUPROLIDE ACETATE
     Indication: Prostate cancer
     Dosage: UNK

REACTIONS (16)
  - Blood electrolytes abnormal [Unknown]
  - Sternal fracture [Unknown]
  - Fall [Unknown]
  - Discomfort [Not Recovered/Not Resolved]
  - Pulmonary oedema [Unknown]
  - Lung neoplasm malignant [Unknown]
  - Weight decreased [Recovering/Resolving]
  - Walking aid user [Not Recovered/Not Resolved]
  - Fat tissue decreased [Unknown]
  - Dyspnoea exertional [Unknown]
  - Product administration error [Unknown]
  - Decreased appetite [Recovering/Resolving]
  - Visual impairment [Unknown]
  - Pain [Unknown]
  - Injection site pain [Recovered/Resolved]
  - Asthenia [Unknown]

NARRATIVE: CASE EVENT DATE: 20220101
